FAERS Safety Report 6444354-3 (Version None)
Quarter: 2009Q4

REPORT INFORMATION
  Report Type: 
  Country: None (occurrence: None)
  Receive Date: 20091117
  Receipt Date: 20091117
  Transmission Date: 20100525
  Serious: No
  Sender: FDA-Public Use
  Company Number: None

PATIENT
  Age: 52 Year
  Sex: Female
  Weight: 54.4316 kg

DRUGS (1)
  1. BETASERON [Suspect]
     Indication: MULTIPLE SCLEROSIS
     Dosage: ADULTS0.25 MILLIGRAMS -MG- EVERY OTHER DAY SQ { 1 YEAR
     Route: 058
     Dates: start: 20060401, end: 20070501

REACTIONS (1)
  - INJECTION SITE ATROPHY [None]
